FAERS Safety Report 4996341-X (Version None)
Quarter: 2006Q2

REPORT INFORMATION
  Report Type: 
  Country: None (occurrence: None)
  Receive Date: 20060505
  Receipt Date: 20060428
  Transmission Date: 20061013
  Serious: Yes (Other)
  Sender: FDA-Public Use
  Company Number: 2006056850

PATIENT
  Age: 52 Year
  Sex: Male

DRUGS (1)
  1. PSEUDOEPHEDRINE HCL [Suspect]
     Dosage: (60 MG) ONE DOSE AT 2PM SECOND AT 10PM, ORAL
     Route: 048
     Dates: start: 20060417, end: 20060418

REACTIONS (1)
  - URINARY RETENTION [None]
